FAERS Safety Report 20709241 (Version 1)
Quarter: 2022Q2

REPORT INFORMATION
  Report Type: Spontaneous
  Country: US (occurrence: US)
  Receive Date: 20220414
  Receipt Date: 20220414
  Transmission Date: 20220720
  Serious: No
  Sender: FDA-Public Use
  Company Number: US-NOVAST LABORATORIES INC.-2022NOV000012

PATIENT

DRUGS (1)
  1. NEW DAY [Suspect]
     Active Substance: LEVONORGESTREL
     Indication: Post coital contraception
     Dosage: 1.5 MILLIGRAM, QD
     Route: 048
     Dates: start: 20220114, end: 20220114

REACTIONS (2)
  - Heavy menstrual bleeding [Recovered/Resolved]
  - Menstruation delayed [Unknown]
